FAERS Safety Report 8045638-8 (Version None)
Quarter: 2012Q1

REPORT INFORMATION
  Report Type: 
  Country: None (occurrence: None)
  Receive Date: 20120110
  Receipt Date: 20111227
  Transmission Date: 20120608
  Serious: Yes (Other)
  Sender: FDA-Public Use
  Company Number: 2011MA018090

PATIENT
  Age: 47 Year
  Sex: Male

DRUGS (1)
  1. BUPROPION HYDROCHLORIDE (WELLBUTRIN XL) [Suspect]
     Indication: PANIC DISORDER
     Dosage: 300 MG; QD

REACTIONS (19)
  - DIZZINESS [None]
  - AGITATION [None]
  - MEMORY IMPAIRMENT [None]
  - MOTOR DYSFUNCTION [None]
  - SELF ESTEEM DECREASED [None]
  - DEREALISATION [None]
  - CHEST PAIN [None]
  - DISEASE RECURRENCE [None]
  - PANIC DISORDER [None]
  - ILLUSION [None]
  - SOCIAL AVOIDANT BEHAVIOUR [None]
  - COORDINATION ABNORMAL [None]
  - AGORAPHOBIA [None]
  - COGNITIVE DISORDER [None]
  - DYSPNOEA [None]
  - DISTURBANCE IN ATTENTION [None]
  - ANXIETY [None]
  - ACTIVITIES OF DAILY LIVING IMPAIRED [None]
  - QUALITY OF LIFE DECREASED [None]
